FAERS Safety Report 8972846 (Version 3)
Quarter: 2013Q1

REPORT INFORMATION
  Report Type: Spontaneous
  Country: US (occurrence: None)
  Receive Date: 20121210
  Receipt Date: 20130204
  Transmission Date: 20140127
  Serious: Yes (Other)
  Sender: FDA-Public Use
  Company Number: MPS1-1000843

PATIENT
  Age: 42 Year
  Sex: Female
  Weight: 48.3 kg

DRUGS (5)
  1. ALDURAZYME [Suspect]
     Indication: MUCOPOLYSACCHARIDOSIS I
     Route: 042
  2. WARFARIN (WARFARIN) [Concomitant]
  3. AZOPT (BRINZOLAMIDE) [Concomitant]
  4. PREDNISON (PREDNISONE) [Concomitant]
  5. TIMOLOL (TIMOLOL) (NONE) [Concomitant]

REACTIONS (7)
  - Papilloedema [None]
  - Musculoskeletal stiffness [None]
  - Mitral valve incompetence [None]
  - Blood immunoglobulin G increased [None]
  - Corneal disorder [None]
  - Macular oedema [None]
  - Retinal oedema [None]
